FAERS Safety Report 6314483-3 (Version None)
Quarter: 2009Q3

REPORT INFORMATION
  Report Type: 
  Country: None (occurrence: None)
  Receive Date: 20090819
  Receipt Date: 20090813
  Transmission Date: 20100115
  Serious: Yes (Other)
  Sender: FDA-Public Use
  Company Number: GB-B.I. PHARMACEUTICALS,INC./RIDGEFIELD-2009-UK-00727UK

PATIENT
  Age: 93 Year
  Sex: Male

DRUGS (4)
  1. ATROVENT [Suspect]
     Indication: CHRONIC OBSTRUCTIVE PULMONARY DISEASE
     Dosage: ATROVENT INHALER2 PUFFS QDS
     Route: 055
  2. ATROVENT [Suspect]
     Dosage: ATROVENT NEBULES 500MCG QDS
  3. SALBUTAMOL [Suspect]
     Indication: CHRONIC OBSTRUCTIVE PULMONARY DISEASE
     Dosage: SALBUTAMOL INHALER 2 PUFFS QDS
     Route: 055
  4. SALBUTAMOL [Suspect]
     Dosage: SALBUTAMOL NEBULES 2.5MGS QDS

REACTIONS (1)
  - CHRONIC OBSTRUCTIVE PULMONARY DISEASE [None]
